FAERS Safety Report 11743219 (Version 1)
Quarter: 2015Q4

REPORT INFORMATION
  Report Type: Spontaneous
  Country: DE (occurrence: DE)
  Receive Date: 20151116
  Receipt Date: 20151116
  Transmission Date: 20160304
  Serious: Yes (Other)
  Sender: FDA-Public Use
  Company Number: DE-BAYER-2015-437649

PATIENT
  Age: 80 Year
  Sex: Male
  Weight: 80 kg

DRUGS (15)
  1. PANTOPRAZOLE [Concomitant]
     Active Substance: PANTOPRAZOLE SODIUM
  2. STIVARGA [Suspect]
     Active Substance: REGORAFENIB
     Indication: COLORECTAL CANCER
     Dosage: FIRST WEEK 2 TABLETS, THEN 3 TABLETS
     Route: 048
     Dates: start: 20150622, end: 20150930
  3. ISOSORBIDE DINITRATE. [Concomitant]
     Active Substance: ISOSORBIDE DINITRATE
  4. CLOPIDOGREL [Concomitant]
     Active Substance: CLOPIDOGREL BISULFATE
  5. RAMIPRIL PLUS [Concomitant]
     Active Substance: RAMIPRIL
  6. CALCIUM [Concomitant]
     Active Substance: CALCIUM
  7. ASS 100 [Concomitant]
     Active Substance: ASPIRIN
  8. TORASEMID [Concomitant]
     Active Substance: TORSEMIDE
  9. LORATAN [Concomitant]
  10. INSULIN [Concomitant]
     Active Substance: INSULIN NOS
  11. RAMIPRIL. [Concomitant]
     Active Substance: RAMIPRIL
  12. SELENIUM [Concomitant]
     Active Substance: SELENIUM
  13. BISOPROLOL [Concomitant]
     Active Substance: BISOPROLOL
  14. SPIRONOLACTON [Concomitant]
     Active Substance: SPIRONOLACTONE
  15. MAGNESIUM [Concomitant]
     Active Substance: MAGNESIUM

REACTIONS (2)
  - Headache [None]
  - Dyspnoea [Recovering/Resolving]
